FAERS Safety Report 4379501-0 (Version None)
Quarter: 2004Q2

REPORT INFORMATION
  Report Type: 
  Country: None (occurrence: None)
  Receive Date: 20040614
  Receipt Date: 20040527
  Transmission Date: 20050107
  Serious: Yes (Other)
  Sender: FDA-Public Use
  Company Number: 2004-05-2443

PATIENT
  Age: 12 Year
  Sex: Female
  Weight: 37.6486 kg

DRUGS (1)
  1. CLARITIN ALLERGEY 24 HR 10MG (LORATADINE) TABLETS [Suspect]
     Indication: HYPERSENSITIVITY
     Dosage: FIVE TABS QD ORAL
     Route: 048
     Dates: start: 20040526, end: 20040526

REACTIONS (2)
  - ATRIOVENTRICULAR BLOCK SECOND DEGREE [None]
  - OVERDOSE [None]
